FAERS Safety Report 5528213-6 (Version None)
Quarter: 2007Q4

REPORT INFORMATION
  Report Type: 
  Country: None (occurrence: None)
  Receive Date: 20071128
  Receipt Date: 20071120
  Transmission Date: 20080405
  Serious: Yes (Hospitalization)
  Sender: FDA-Public Use
  Company Number: US-WYE-H01366207

PATIENT
  Sex: Female
  Weight: 50.85 kg

DRUGS (7)
  1. PROTONIX [Suspect]
     Indication: PEPTIC ULCER
     Route: 048
     Dates: start: 20071026, end: 20071107
  2. PROTONIX [Suspect]
     Route: 048
     Dates: start: 20071108, end: 20071113
  3. PROTONIX [Suspect]
     Route: 048
     Dates: start: 20071114
  4. CALCITONIN-SALMON [Concomitant]
     Dosage: DAILY DOSE UNSPECIFIED
     Route: 048
  5. LEVOTHYROXINE SODIUM [Concomitant]
     Dosage: 50 MCG DAILY
     Route: 048
  6. TOPROL-XL [Concomitant]
     Route: 048
  7. ALTACE [Concomitant]
     Route: 048

REACTIONS (4)
  - ACCIDENTAL OVERDOSE [None]
  - DIARRHOEA [None]
  - INCORRECT DOSE ADMINISTERED [None]
  - VOMITING [None]
